FAERS Safety Report 8399087-3 (Version None)
Quarter: 2012Q2

REPORT INFORMATION
  Report Type: 
  Country: None (occurrence: None)
  Receive Date: 20120531
  Receipt Date: 20120523
  Transmission Date: 20120825
  Serious: Yes (Hospitalization)
  Sender: FDA-Public Use
  Company Number: ES-FRI-1000030818

PATIENT
  Age: 85 Year
  Sex: Female

DRUGS (10)
  1. KARVEA [Concomitant]
     Dosage: 300 MG
  2. ADALAT [Concomitant]
     Dosage: 60 MG
     Route: 048
  3. ATORVASTATIN CALCIUM [Concomitant]
     Dosage: 10 MG
     Route: 048
  4. KILOR [Concomitant]
     Dosage: 1 SACHET
     Route: 048
  5. OMAPREN [Concomitant]
     Dosage: 20 MG
     Route: 048
  6. NOVOLOG MIX 70/30 [Concomitant]
     Dosage: 64 IU
     Route: 058
  7. FUROSEMIDE [Concomitant]
     Dosage: 80 MG
     Route: 048
  8. ALLOPURINOL [Concomitant]
     Dosage: 100 MG
     Route: 048
  9. NEBIVOLOL [Suspect]
     Dosage: 5 MG
     Route: 048
     Dates: start: 20100101, end: 20110902
  10. PLAVIX [Concomitant]
     Dosage: 75 MG
     Route: 048

REACTIONS (2)
  - ACUTE PRERENAL FAILURE [None]
  - NODAL ARRHYTHMIA [None]
